FAERS Safety Report 23810572 (Version 1)
Quarter: 2024Q2

REPORT INFORMATION
  Report Type: Spontaneous
  Country: US (occurrence: US)
  Receive Date: 20240502
  Receipt Date: 20240502
  Transmission Date: 20240716
  Serious: No
  Sender: FDA-Public Use
  Company Number: US-AMGEN-USASP2024084677

PATIENT
  Age: 71 Year
  Sex: Female

DRUGS (1)
  1. PROLIA [Suspect]
     Active Substance: DENOSUMAB
     Indication: Product used for unknown indication
     Dosage: 140 MILLIGRAM, Q6MO
     Route: 058

REACTIONS (2)
  - Chest discomfort [Not Recovered/Not Resolved]
  - Endodontic procedure [Unknown]

NARRATIVE: CASE EVENT DATE: 20240425
